FAERS Safety Report 7128017-7 (Version None)
Quarter: 2010Q4

REPORT INFORMATION
  Report Type: 
  Country: None (occurrence: None)
  Receive Date: 20101130
  Receipt Date: 20101122
  Transmission Date: 20110411
  Serious: No
  Sender: FDA-Public Use
  Company Number: PHHY2010DE71094

PATIENT
  Sex: Female

DRUGS (1)
  1. EXTAVIA [Suspect]
     Indication: MULTIPLE SCLEROSIS
     Dosage: 1 ML/ DAY
     Route: 058
     Dates: start: 20100802

REACTIONS (2)
  - GASTROINTESTINAL HYPOMOTILITY [None]
  - SLEEP DISORDER [None]
